FAERS Safety Report 6703301-7 (Version None)
Quarter: 2010Q2

REPORT INFORMATION
  Report Type: 
  Country: None (occurrence: None)
  Receive Date: 20100430
  Receipt Date: 20100420
  Transmission Date: 20101027
  Serious: Yes (Hospitalization)
  Sender: FDA-Public Use
  Company Number: RU-JNJFOC-20100405219

PATIENT
  Age: 46 Year
  Sex: Female

DRUGS (3)
  1. RISPOLEPT CONSTA [Suspect]
     Indication: SCHIZOPHRENIA
     Route: 030
  2. VITAMINE B [Concomitant]
     Route: 065
  3. PSYCHOSTIMULANTS AND NOOTROPICS [Concomitant]
     Route: 065

REACTIONS (5)
  - GENERAL PHYSICAL HEALTH DETERIORATION [None]
  - PARKINSONISM [None]
  - RESTLESSNESS [None]
  - TREMOR [None]
  - TRISMUS [None]
